FAERS Safety Report 10037463 (Version 2)
Quarter: 2014Q2

REPORT INFORMATION
  Report Type: Spontaneous
  Country: US (occurrence: US)
  Receive Date: 20140326
  Receipt Date: 20140530
  Transmission Date: 20141212
  Serious: No
  Sender: FDA-Public Use
  Company Number: US-009507513-1403USA002170

PATIENT
  Sex: Male
  Weight: 70.3 kg

DRUGS (1)
  1. MIRALAX [Suspect]
     Indication: CONSTIPATION
     Dosage: 17 G, QAM
     Route: 048

REACTIONS (2)
  - Off label use [Unknown]
  - Inappropriate schedule of drug administration [Unknown]
